FAERS Safety Report 18844821 (Version 1)
Quarter: 2021Q1

REPORT INFORMATION
  Report Type: Report from Study
  Country: US (occurrence: US)
  Receive Date: 20210203
  Receipt Date: 20210203
  Transmission Date: 20210419
  Serious: No
  Sender: FDA-Public Use
  Company Number: US-EXELIXIS-CABO-20029012

PATIENT
  Sex: Male

DRUGS (3)
  1. DIURETIC [Concomitant]
     Active Substance: UNSPECIFIED INGREDIENT
     Indication: NEUROPATHY PERIPHERAL
     Dosage: UNK
  2. CABOMETYX [Suspect]
     Active Substance: CABOZANTINIB S-MALATE
     Indication: PANCREATIC CARCINOMA
     Dosage: 40 MG, QD
     Dates: start: 20200315
  3. DIURETIC [Concomitant]
     Active Substance: UNSPECIFIED INGREDIENT
     Indication: OEDEMA PERIPHERAL

REACTIONS (8)
  - Fatigue [Unknown]
  - Dry eye [Unknown]
  - Blood pressure increased [Recovered/Resolved]
  - Off label use [Unknown]
  - Sleep disorder [Unknown]
  - Diarrhoea [Recovering/Resolving]
  - Photosensitivity reaction [Unknown]
  - Dry skin [Unknown]
